FAERS Safety Report 18706684 (Version 1)
Quarter: 2021Q1

REPORT INFORMATION
  Report Type: Spontaneous
  Country: US (occurrence: US)
  Receive Date: 20210106
  Receipt Date: 20210106
  Transmission Date: 20210419
  Serious: Yes (Death)
  Sender: FDA-Public Use
  Company Number: None

PATIENT
  Sex: Male

DRUGS (3)
  1. REPATHA [Suspect]
     Active Substance: EVOLOCUMAB
     Indication: TYPE IIA HYPERLIPIDAEMIA
     Dosage: ?          OTHER FREQUENCY:EVERY TWO WEEKS;?
     Route: 058
     Dates: start: 20180823
  2. PANTOPRAZOLE, ELIQUIS, SERTRALINE, SOTALOL, LATANPROST [Concomitant]
  3. NITROGLYCERINE, MIRTAZAPINE, BUMETANIDE, ALPRAZOLAM, ISOSORB MONO [Concomitant]

REACTIONS (1)
  - Death [None]
